FAERS Safety Report 7672991-7 (Version None)
Quarter: 2011Q3

REPORT INFORMATION
  Report Type: 
  Country: None (occurrence: None)
  Receive Date: 20110809
  Receipt Date: 20110727
  Transmission Date: 20111222
  Serious: Yes (Hospitalization)
  Sender: FDA-Public Use
  Company Number: JP-ASTRAZENECA-2011SE43372

PATIENT
  Age: 68 Year
  Sex: Female

DRUGS (1)
  1. MEROPENEM [Suspect]
     Indication: PYELONEPHRITIS
     Route: 042
     Dates: start: 20110618, end: 20110701

REACTIONS (1)
  - FEBRILE NEUTROPENIA [None]
